FAERS Safety Report 6991758-6 (Version None)
Quarter: 2010Q3

REPORT INFORMATION
  Report Type: 
  Country: None (occurrence: None)
  Receive Date: 20100916
  Receipt Date: 20100916
  Transmission Date: 20110219
  Serious: No
  Sender: FDA-Public Use
  Company Number: None

PATIENT
  Age: 51 Year
  Sex: Female
  Weight: 79.3795 kg

DRUGS (2)
  1. SALONPAS [Suspect]
     Indication: ARTHRALGIA
     Dosage: PATCH, 3 IN A PACKET: USED 1 ONCE CUTANEOUS
     Route: 003
     Dates: start: 20100910, end: 20100911
  2. ALLEAVE [Concomitant]

REACTIONS (1)
  - MENISCUS LESION [None]
